FAERS Safety Report 6718746-9 (Version None)
Quarter: 2010Q2

REPORT INFORMATION
  Report Type: 
  Country: None (occurrence: None)
  Receive Date: 20100511
  Receipt Date: 20100503
  Transmission Date: 20101027
  Serious: Yes (Other)
  Sender: FDA-Public Use
  Company Number: US-TEVA-233659USA

PATIENT
  Age: 39 Year
  Sex: Female

DRUGS (6)
  1. FLUOXETINE CAPSULE 10MG,20MG [Suspect]
  2. TOPIRAMATE [Suspect]
     Indication: CONVULSION
     Dosage: 50 MG TWICE DAILY
  3. AMANTADINE HCL [Suspect]
     Indication: TREMOR
     Dosage: 2100 MG TWICE DAILY
  4. BUPROPION HCL [Concomitant]
  5. GLATIRAMER ACETATE [Concomitant]
  6. CLONAZEPAM [Concomitant]

REACTIONS (1)
  - CORNEAL OEDEMA [None]
